FAERS Safety Report 20539493 (Version 14)
Quarter: 2023Q1

REPORT INFORMATION
  Report Type: Report from Study
  Country: JP (occurrence: JP)
  Receive Date: 20220302
  Receipt Date: 20230118
  Transmission Date: 20230418
  Serious: Yes (Hospitalization, Disabling, Other)
  Sender: FDA-Public Use
  Company Number: JP-JNJFOC-20210941826

PATIENT
  Age: 58 Year
  Sex: Male
  Weight: 51.5 kg

DRUGS (52)
  1. SIRTURO [Suspect]
     Active Substance: BEDAQUILINE FUMARATE
     Indication: Pulmonary tuberculosis
     Route: 048
     Dates: start: 20210224, end: 20210310
  2. SIRTURO [Suspect]
     Active Substance: BEDAQUILINE FUMARATE
     Indication: Pulmonary tuberculosis
     Route: 048
     Dates: start: 20210312, end: 20220221
  3. LINEZOLID [Suspect]
     Active Substance: LINEZOLID
     Indication: Pulmonary tuberculosis
     Route: 048
     Dates: start: 20210224, end: 20220221
  4. CYCLOSERINE [Suspect]
     Active Substance: CYCLOSERINE
     Indication: Pulmonary tuberculosis
     Route: 048
     Dates: start: 20210224, end: 20211011
  5. CYCLOSERINE [Suspect]
     Active Substance: CYCLOSERINE
     Route: 048
     Dates: start: 20211012, end: 20220221
  6. LEVOFLOXACIN HEMIHYDRATE [Suspect]
     Active Substance: LEVOFLOXACIN
     Indication: Pulmonary tuberculosis
     Route: 048
     Dates: start: 20210224, end: 20211011
  7. LEVOFLOXACIN HEMIHYDRATE [Suspect]
     Active Substance: LEVOFLOXACIN
     Route: 048
     Dates: start: 20211012, end: 20220221
  8. CLOFAZIMINE [Suspect]
     Active Substance: CLOFAZIMINE
     Indication: Pulmonary tuberculosis
     Route: 048
     Dates: start: 20210407, end: 20211011
  9. CLOFAZIMINE [Suspect]
     Active Substance: CLOFAZIMINE
     Route: 048
     Dates: start: 20211012, end: 20220221
  10. AMIKACIN SULFATE [Concomitant]
     Active Substance: AMIKACIN SULFATE
     Indication: Pulmonary tuberculosis
     Route: 065
     Dates: start: 20210224, end: 20210406
  11. LANSOPRAZOLE [Concomitant]
     Active Substance: LANSOPRAZOLE
     Indication: Gastrooesophageal reflux disease
     Route: 048
  12. LOXOPROFEN SODIUM [Concomitant]
     Active Substance: LOXOPROFEN SODIUM
     Indication: Pulmonary tuberculosis
     Route: 048
     Dates: start: 20210226, end: 20210226
  13. METFORMIN HYDROCHLORIDE [Concomitant]
     Active Substance: METFORMIN HYDROCHLORIDE
     Indication: Type 2 diabetes mellitus
     Route: 048
     Dates: end: 20210526
  14. GLIMEPIRIDE [Concomitant]
     Active Substance: GLIMEPIRIDE
     Indication: Type 2 diabetes mellitus
     Route: 048
     Dates: end: 20210526
  15. PIOGLITAZONE HYDROCHLORIDE [Concomitant]
     Active Substance: PIOGLITAZONE HYDROCHLORIDE
     Indication: Type 2 diabetes mellitus
     Route: 048
     Dates: end: 20211011
  16. PIOGLITAZONE HYDROCHLORIDE [Concomitant]
     Active Substance: PIOGLITAZONE HYDROCHLORIDE
     Route: 048
     Dates: start: 20211012
  17. JANUVIA [Concomitant]
     Active Substance: SITAGLIPTIN PHOSPHATE
     Indication: Type 2 diabetes mellitus
     Route: 048
     Dates: end: 20211011
  18. JANUVIA [Concomitant]
     Active Substance: SITAGLIPTIN PHOSPHATE
     Route: 048
     Dates: start: 20211012
  19. CARBOCYSTEINE [Concomitant]
     Active Substance: CARBOCYSTEINE
     Indication: Pulmonary tuberculosis
     Route: 048
     Dates: end: 20210226
  20. CARBOCYSTEINE [Concomitant]
     Active Substance: CARBOCYSTEINE
     Route: 048
     Dates: start: 20210906, end: 20210921
  21. MAGNESIUM OXIDE [Concomitant]
     Active Substance: MAGNESIUM OXIDE
     Indication: Constipation
     Route: 048
     Dates: end: 20210228
  22. ZOLPIDEM TARTRATE [Concomitant]
     Active Substance: ZOLPIDEM TARTRATE
     Indication: Insomnia
     Route: 048
     Dates: start: 20210312, end: 20210315
  23. ZOLPIDEM TARTRATE [Concomitant]
     Active Substance: ZOLPIDEM TARTRATE
     Indication: Insomnia
     Route: 048
     Dates: start: 20210405
  24. BROTIZOLAM [Concomitant]
     Active Substance: BROTIZOLAM
     Indication: Insomnia
     Route: 048
     Dates: start: 20210312, end: 20210315
  25. BROTIZOLAM [Concomitant]
     Active Substance: BROTIZOLAM
     Indication: Insomnia
     Route: 048
     Dates: start: 20210405
  26. SODIUM GUALENATE [Concomitant]
     Active Substance: SODIUM GUALENATE
     Indication: Pharyngitis
     Route: 065
     Dates: start: 20210427, end: 20210510
  27. MIYA-BM [Concomitant]
     Active Substance: CLOSTRIDIUM BUTYRICUM SPORES STRAIN M-55
     Indication: Constipation
     Route: 048
     Dates: start: 20210302, end: 20210809
  28. TRANEXAMIC ACID [Concomitant]
     Active Substance: TRANEXAMIC ACID
     Indication: Pharyngitis
     Route: 048
     Dates: start: 20210430, end: 20210506
  29. HEPARINOID [Concomitant]
     Indication: Xeroderma
     Route: 061
     Dates: start: 20210430
  30. DOMIPHEN BROMIDE [Concomitant]
     Active Substance: DOMIPHEN BROMIDE
     Indication: Pharyngitis
     Route: 048
     Dates: start: 20210506, end: 20210512
  31. FEXOFENADINE HYDROCHLORIDE [Concomitant]
     Active Substance: FEXOFENADINE HYDROCHLORIDE
     Indication: Xeroderma
     Route: 048
     Dates: start: 20210531, end: 20210831
  32. URSODIOL [Concomitant]
     Active Substance: URSODIOL
     Indication: Hepatic function abnormal
     Route: 048
     Dates: start: 20210706
  33. MYSER [DIFLUPREDNATE] [Concomitant]
     Indication: Asteatosis
     Route: 061
     Dates: start: 20210706
  34. ACETAMINOPHEN [Concomitant]
     Active Substance: ACETAMINOPHEN
     Indication: Pulmonary tuberculosis
     Route: 042
     Dates: start: 20210226, end: 20210226
  35. SODIUM FERROUS CITRATE [Concomitant]
     Active Substance: SODIUM FERROUS CITRATE
     Indication: Anaemia
     Route: 048
     Dates: start: 20210810, end: 20210903
  36. HUMAN RED BLOOD CELL [Concomitant]
     Active Substance: HUMAN RED BLOOD CELL
     Indication: Anaemia
     Dosage: UNKNOWN
     Route: 065
     Dates: start: 20210901
  37. HUMAN RED BLOOD CELL [Concomitant]
     Active Substance: HUMAN RED BLOOD CELL
     Indication: Anaemia
     Dosage: DOSE UNKNOWN
     Route: 065
     Dates: start: 20211228, end: 20211228
  38. BETAMETHASONE [Concomitant]
     Active Substance: BETAMETHASONE
     Indication: Skin disorder
     Dosage: DOSE UNKNOWN
     Route: 061
  39. LOCOID [Concomitant]
     Active Substance: HYDROCORTISONE BUTYRATE
     Indication: Skin disorder
     Dosage: DOSE UNKNOWN
     Route: 061
  40. ALPROSTADIL ALFADEX [Concomitant]
     Active Substance: ALPROSTADIL ALFADEX
     Indication: Skin disorder
     Dosage: DOSE UNKNOWN
     Route: 061
  41. METHYLCOBALAMIN [Concomitant]
     Active Substance: METHYLCOBALAMIN
     Indication: Neuropathy peripheral
     Dosage: DOSE UNKNOWN
     Route: 065
  42. DULOXETINE HYDROCHLORIDE [Concomitant]
     Active Substance: DULOXETINE HYDROCHLORIDE
     Indication: Neuropathy peripheral
     Dosage: DOSE UNKNOWN
     Route: 048
  43. MOXIFLOXACIN HYDROCHLORIDE [Concomitant]
     Active Substance: MOXIFLOXACIN HYDROCHLORIDE
     Indication: Cataract
     Route: 047
     Dates: start: 20211227, end: 20220127
  44. CALONAL [Concomitant]
     Active Substance: ACETAMINOPHEN
     Indication: Spinal compression fracture
     Route: 065
     Dates: start: 20210904
  45. KETOPROFEN [Concomitant]
     Active Substance: KETOPROFEN
     Indication: Spinal compression fracture
     Dosage: DOSE UNKNOWN
     Route: 062
     Dates: start: 20210906
  46. FUROSEMIDE [Concomitant]
     Active Substance: FUROSEMIDE
     Indication: Oedema
     Dosage: DOSE UNKNOWN
     Route: 065
  47. FUROSEMIDE [Concomitant]
     Active Substance: FUROSEMIDE
     Indication: Anaemia
     Dosage: DOSE UNKNOWN
     Route: 065
     Dates: start: 20210902, end: 20210920
  48. FUROSEMIDE [Concomitant]
     Active Substance: FUROSEMIDE
     Dosage: DOSE UNKNOWN
     Route: 065
     Dates: start: 20210921
  49. EPINASTINE [Concomitant]
     Active Substance: EPINASTINE
     Indication: Asthma
     Dosage: DOSE UNKNOWN
     Route: 065
  50. EPINASTINE [Concomitant]
     Active Substance: EPINASTINE
     Indication: Cough variant asthma
     Dosage: DOSE UNKNOWN
     Route: 048
     Dates: start: 20210902
  51. CALCIUM POLYSTYRENE SULFONATE [Concomitant]
     Active Substance: CALCIUM POLYSTYRENE SULFONATE
     Indication: Hyperkalaemia
     Dosage: DOSE UNKNOWN
     Route: 048
     Dates: start: 20220208
  52. KETOPROFEN [Concomitant]
     Active Substance: KETOPROFEN
     Indication: Spinal compression fracture
     Route: 062
     Dates: start: 20210905, end: 20210911

REACTIONS (7)
  - Anaemia [Recovering/Resolving]
  - Skin disorder [Recovering/Resolving]
  - Neuropathy peripheral [Not Recovered/Not Resolved]
  - Spinal compression fracture [Recovered/Resolved]
  - Renal impairment [Recovering/Resolving]
  - Hyperkalaemia [Unknown]
  - Oedema [Recovering/Resolving]

NARRATIVE: CASE EVENT DATE: 20210831
